FAERS Safety Report 21273096 (Version 1)
Quarter: 2022Q3

REPORT INFORMATION
  Report Type: Spontaneous
  Country: US (occurrence: US)
  Receive Date: 20220831
  Receipt Date: 20220831
  Transmission Date: 20221026
  Serious: No
  Sender: FDA-Public Use
  Company Number: US-LUNDBECK-DKLU3051580

PATIENT
  Age: 34 Year
  Sex: Male

DRUGS (1)
  1. VYEPTI [Suspect]
     Active Substance: EPTINEZUMAB-JJMR
     Indication: Migraine
     Dosage: THIS IS HIS 10TH DOSE
     Route: 041
     Dates: start: 20220815

REACTIONS (2)
  - Paraesthesia [Unknown]
  - Dizziness [Unknown]

NARRATIVE: CASE EVENT DATE: 20220815
